FAERS Safety Report 9618982 (Version 1)
Quarter: 2013Q4

REPORT INFORMATION
  Report Type: Spontaneous
  Country: FR (occurrence: FR)
  Receive Date: 20131014
  Receipt Date: 20131014
  Transmission Date: 20140711
  Serious: Yes (Hospitalization, Other)
  Sender: FDA-Public Use
  Company Number: PHHY2013FR110838

PATIENT
  Age: 50 Year
  Sex: Female

DRUGS (2)
  1. CLOMIPRAMINE [Suspect]
  2. BENZODIAZEPINES [Suspect]

REACTIONS (16)
  - Coma [Recovered/Resolved]
  - Suicide attempt [Recovered/Resolved]
  - Overdose [Unknown]
  - Septic shock [Recovered/Resolved]
  - Body temperature increased [Recovered/Resolved]
  - Leukocytosis [Recovered/Resolved]
  - C-reactive protein increased [Recovered/Resolved]
  - Blood pressure decreased [Recovered/Resolved]
  - Tachycardia [Recovered/Resolved]
  - Acute respiratory distress syndrome [Recovered/Resolved]
  - Tachypnoea [Recovered/Resolved]
  - Oxygen saturation decreased [Recovered/Resolved]
  - Rales [Recovered/Resolved]
  - Pneumonia aspiration [Recovered/Resolved]
  - Haemophilus infection [Recovered/Resolved]
  - Haemoglobin decreased [Recovered/Resolved]
